FAERS Safety Report 23889397 (Version 3)
Quarter: 2024Q2

REPORT INFORMATION
  Report Type: Spontaneous
  Country: US (occurrence: US)
  Receive Date: 20240523
  Receipt Date: 20240624
  Transmission Date: 20240716
  Serious: Yes (Death, Other)
  Sender: FDA-Public Use
  Company Number: US-PFIZER INC-202400173487

PATIENT
  Age: 85 Year
  Sex: Male
  Weight: 108.86 kg

DRUGS (6)
  1. VYNDAMAX [Suspect]
     Active Substance: TAFAMIDIS
     Indication: Cardiac amyloidosis
     Dosage: 61 MG, DAILY
     Route: 048
     Dates: start: 202101, end: 202403
  2. BUMEX [Concomitant]
     Active Substance: BUMETANIDE
     Dosage: UNK
  3. TOPROL XL [Concomitant]
     Active Substance: METOPROLOL SUCCINATE
     Dosage: UNK
  4. LEVOTHYROXINE [Concomitant]
     Active Substance: LEVOTHYROXINE\LEVOTHYROXINE SODIUM
     Dosage: UNK
  5. TRAZODONE [Concomitant]
     Active Substance: TRAZODONE HYDROCHLORIDE
     Dosage: UNK
  6. PROTONIX [Concomitant]
     Active Substance: PANTOPRAZOLE SODIUM
     Dosage: UNK

REACTIONS (8)
  - Cholangiocarcinoma [Fatal]
  - Ascites [Unknown]
  - Pneumonia [Unknown]
  - Atrial fibrillation [Unknown]
  - Cardiac failure congestive [Unknown]
  - Acute kidney injury [Unknown]
  - Sepsis [Unknown]
  - Failure to thrive [Unknown]

NARRATIVE: CASE EVENT DATE: 20240412
